FAERS Safety Report 10910773 (Version 3)
Quarter: 2015Q4

REPORT INFORMATION
  Report Type: Report from Study
  Country: DE (occurrence: DE)
  Receive Date: 20150312
  Receipt Date: 20151113
  Transmission Date: 20160304
  Serious: Yes (Hospitalization)
  Sender: FDA-Public Use
  Company Number: DE-ABBVIE-15K-062-1357267-00

PATIENT
  Age: 62 Year
  Sex: Female
  Weight: 62 kg

DRUGS (9)
  1. METEX [Suspect]
     Active Substance: METFORMIN HYDROCHLORIDE
     Indication: PRODUCT USED FOR UNKNOWN INDICATION
     Dosage: THERAPY-BREAKUP
     Route: 065
     Dates: start: 20111122, end: 20141120
  2. L-THYROXIN [Concomitant]
     Active Substance: LEVOTHYROXINE SODIUM
     Indication: PRODUCT USED FOR UNKNOWN INDICATION
     Dosage: 0.5-0-0
  3. CANDESARTAN [Concomitant]
     Active Substance: CANDESARTAN
     Indication: PRODUCT USED FOR UNKNOWN INDICATION
     Dosage: 1-0-1
  4. HUMIRA [Suspect]
     Active Substance: ADALIMUMAB
     Indication: PSORIASIS
     Route: 058
     Dates: start: 20110907
  5. HUMIRA [Suspect]
     Active Substance: ADALIMUMAB
     Indication: PSORIATIC ARTHROPATHY
  6. OPIPRAMOL [Concomitant]
     Active Substance: OPIPRAMOL
     Indication: PRODUCT USED FOR UNKNOWN INDICATION
     Dosage: 0-0-0-1
  7. METEX [Suspect]
     Active Substance: METFORMIN HYDROCHLORIDE
     Route: 065
  8. PROCORALAN [Concomitant]
     Active Substance: IVABRADINE
     Indication: PRODUCT USED FOR UNKNOWN INDICATION
     Dosage: 1-0-1
  9. PANTOPRAZOLE [Concomitant]
     Active Substance: PANTOPRAZOLE SODIUM
     Indication: PRODUCT USED FOR UNKNOWN INDICATION
     Dosage: 1-0-0

REACTIONS (13)
  - Cholangitis [Recovered/Resolved]
  - Vomiting [Unknown]
  - Cholangitis [Recovered/Resolved]
  - Abdominal pain upper [Recovered/Resolved]
  - Bile duct stone [Recovered/Resolved]
  - Cholestasis [Unknown]
  - Vomiting [Recovered/Resolved]
  - Bundle branch block left [Unknown]
  - Abdominal discomfort [Recovered/Resolved]
  - Bile duct stone [Recovered/Resolved]
  - Chills [Unknown]
  - Hiatus hernia [Unknown]
  - Nausea [Unknown]

NARRATIVE: CASE EVENT DATE: 201411
